FAERS Safety Report 14805274 (Version 2)
Quarter: 2018Q2

REPORT INFORMATION
  Report Type: Spontaneous
  Country: US (occurrence: US)
  Receive Date: 20180425
  Receipt Date: 20180517
  Transmission Date: 20180711
  Serious: Yes (Hospitalization)
  Sender: FDA-Public Use
  Company Number: US-BAYER-2018-077580

PATIENT
  Age: 63 Year
  Sex: Female
  Weight: 63.5 kg

DRUGS (7)
  1. ACETYLSALICYLIC ACID (} 100 MG) [Suspect]
     Active Substance: ASPIRIN
     Indication: STENT PLACEMENT
     Dosage: 325 MG, QD
     Route: 048
     Dates: start: 2009
  2. XARELTO [Suspect]
     Active Substance: RIVAROXABAN
     Indication: PULMONARY THROMBOSIS
     Dosage: 20 MG, QD
     Route: 048
     Dates: start: 20180209, end: 20180323
  3. CARVEDILOL. [Concomitant]
     Active Substance: CARVEDILOL
     Indication: CARDIAC DISORDER
  4. CARVEDILOL. [Concomitant]
     Active Substance: CARVEDILOL
     Indication: HYPERTENSION
     Dosage: 25 MG, BID
     Route: 048
     Dates: start: 2015
  5. PLAVIX [Suspect]
     Active Substance: CLOPIDOGREL BISULFATE
     Indication: STENT PLACEMENT
     Dosage: 75 MG, QD
     Route: 048
     Dates: start: 2008
  6. XARELTO [Suspect]
     Active Substance: RIVAROXABAN
     Indication: PULMONARY THROMBOSIS
     Dosage: 15 MG, BID
     Route: 048
     Dates: start: 20180119, end: 20180209
  7. LISINOPRIL. [Concomitant]
     Active Substance: LISINOPRIL
     Indication: HYPERTENSION
     Dosage: 20 MG, BID
     Route: 048
     Dates: start: 2014

REACTIONS (10)
  - Rash [Unknown]
  - Weight decreased [Unknown]
  - Palpitations [Unknown]
  - Decreased appetite [Recovering/Resolving]
  - Paranoia [Not Recovered/Not Resolved]
  - Contusion [Unknown]
  - Alopecia [Not Recovered/Not Resolved]
  - Dysgeusia [Recovering/Resolving]
  - Fluid retention [Unknown]
  - Dry skin [Unknown]

NARRATIVE: CASE EVENT DATE: 201801
